FAERS Safety Report 5446091-0 (Version None)
Quarter: 2007Q3

REPORT INFORMATION
  Report Type: 
  Country: None (occurrence: None)
  Receive Date: 20070904
  Receipt Date: 20070809
  Transmission Date: 20080115
  Serious: Yes (Hospitalization)
  Sender: FDA-Public Use
  Company Number: 6036918

PATIENT
  Age: 62 Year
  Sex: Male

DRUGS (7)
  1. TEMAZEPAM [Suspect]
     Indication: ANXIETY
  2. ALPRAZOLAM [Suspect]
     Indication: DEPRESSED MOOD
  3. FLUOXETINE [Concomitant]
  4. ZOPICLONE (ZOPICLONE) [Concomitant]
  5. DIAZEPAM [Suspect]
     Indication: ANXIETY
     Dosage: 14 MG (7 MG, 2 IN1 D )
  6. LORAZEPAM [Suspect]
     Indication: ANXIETY
     Dosage: 6 MG (6 MG, 1 N 1 D)
  7. LORAZEPAM [Suspect]
     Indication: DEPRESSED MOOD
     Dosage: 6 MG (6 MG, 1 N 1 D)

REACTIONS (9)
  - AGITATION [None]
  - ANXIETY [None]
  - DRUG DEPENDENCE [None]
  - DRUG WITHDRAWAL SYNDROME [None]
  - FEAR [None]
  - INTENTIONAL OVERDOSE [None]
  - PARAESTHESIA [None]
  - PSYCHIATRIC SYMPTOM [None]
  - SUICIDE ATTEMPT [None]
